FAERS Safety Report 5247234-4 (Version None)
Quarter: 2007Q1

REPORT INFORMATION
  Report Type: 
  Country: None (occurrence: None)
  Receive Date: 20070222
  Receipt Date: 20070222
  Transmission Date: 20070707
  Serious: Yes (Life-Threatening, Hospitalization)
  Sender: FDA-Public Use
  Company Number: None

PATIENT
  Age: 35 Year
  Sex: Female

DRUGS (2)
  1. LYMPHAZURIN [Suspect]
     Indication: DIAGNOSTIC PROCEDURE
     Dosage: 3ML ONE TIME PERI-TUMOR
     Dates: start: 20070219
  2. FLAGYL [Concomitant]

REACTIONS (5)
  - BLOOD PRESSURE IMMEASURABLE [None]
  - CARDIO-RESPIRATORY ARREST [None]
  - PCO2 INCREASED [None]
  - PERIPHERAL VASCULAR DISORDER [None]
  - PULSE ABSENT [None]
